FAERS Safety Report 5295467-3 (Version None)
Quarter: 2007Q2

REPORT INFORMATION
  Report Type: 
  Country: None (occurrence: None)
  Receive Date: 20070412
  Receipt Date: 20070404
  Transmission Date: 20071010
  Serious: Yes (Other)
  Sender: FDA-Public Use
  Company Number: NL-GENENTECH-232689

PATIENT
  Sex: Male
  Weight: 100 kg

DRUGS (3)
  1. RITUXIMAB [Suspect]
     Indication: CHRONIC LYMPHOCYTIC LEUKAEMIA
     Dosage: 200 MG, UNK
     Route: 042
     Dates: start: 20041123, end: 20050118
  2. FLUDARABINE [Suspect]
     Indication: CHRONIC LYMPHOCYTIC LEUKAEMIA
     Dosage: 55 MG, UNK
     Route: 042
     Dates: start: 20041124, end: 20050120
  3. CYCLOPHOSPHAMIDE [Suspect]
     Indication: CHRONIC LYMPHOCYTIC LEUKAEMIA
     Dosage: 550 MG, UNK
     Route: 042
     Dates: start: 20041124, end: 20050120

REACTIONS (1)
  - MYELODYSPLASTIC SYNDROME [None]
